FAERS Safety Report 5494545-3 (Version None)
Quarter: 2007Q4

REPORT INFORMATION
  Report Type: 
  Country: None (occurrence: None)
  Receive Date: 20071022
  Receipt Date: 20071015
  Transmission Date: 20080405
  Serious: Yes (Hospitalization, Other)
  Sender: FDA-Public Use
  Company Number: 2007SP019709

PATIENT
  Age: 58 Year
  Sex: Male

DRUGS (4)
  1. PEG-INTRON [Suspect]
     Indication: HEPATITIS C
     Dosage: SC
     Route: 058
     Dates: start: 20070723
  2. RIBAVIRIN [Suspect]
     Indication: HEPATITIS C
     Dosage: PO; BID; PO
     Route: 048
     Dates: start: 20070101, end: 20070101
  3. RIBAVIRIN [Suspect]
     Indication: HEPATITIS C
     Dosage: PO; BID; PO
     Route: 048
     Dates: start: 20070723
  4. PAXIL [Suspect]
     Indication: DRUG USE FOR UNKNOWN INDICATION

REACTIONS (11)
  - ABDOMINAL PAIN UPPER [None]
  - CRYING [None]
  - DEPRESSION [None]
  - DIZZINESS [None]
  - DYSPNOEA [None]
  - FALL [None]
  - FEELING ABNORMAL [None]
  - HYPERHIDROSIS [None]
  - INCOHERENT [None]
  - SUICIDAL IDEATION [None]
  - VOMITING [None]
